FAERS Safety Report 18629219 (Version 2)
Quarter: 2021Q1

REPORT INFORMATION
  Report Type: Spontaneous
  Country: US (occurrence: US)
  Receive Date: 20201217
  Receipt Date: 20210120
  Transmission Date: 20210419
  Serious: No
  Sender: FDA-Public Use
  Company Number: US-JNJFOC-20201214764

PATIENT
  Age: 57 Year
  Sex: Male

DRUGS (3)
  1. TREMFYA [Suspect]
     Active Substance: GUSELKUMAB
     Indication: PSORIATIC ARTHROPATHY
     Route: 058
     Dates: start: 20201102
  2. TREMFYA [Suspect]
     Active Substance: GUSELKUMAB
  3. TREMFYA [Suspect]
     Active Substance: GUSELKUMAB

REACTIONS (3)
  - Product dose omission issue [Unknown]
  - Wrong technique in product usage process [Unknown]
  - Device malfunction [Unknown]

NARRATIVE: CASE EVENT DATE: 20201206
